FAERS Safety Report 23698895 (Version 1)
Quarter: 2024Q2

REPORT INFORMATION
  Report Type: Spontaneous
  Country: US (occurrence: None)
  Receive Date: 20240402
  Receipt Date: 20240402
  Transmission Date: 20240716
  Serious: Yes (Other)
  Sender: FDA-Public Use
  Company Number: None

PATIENT
  Age: 16 Year
  Sex: Female
  Weight: 37.8 kg

DRUGS (8)
  1. SUBLOCADE [Suspect]
     Active Substance: BUPRENORPHINE
     Indication: Drug use disorder
     Dosage: FREQUENCY : MONTHLY;?
     Route: 058
     Dates: start: 20240322
  2. ONDANSETRON [Concomitant]
     Active Substance: ONDANSETRON
  3. CHOLECALCIFEROL [Concomitant]
     Active Substance: CHOLECALCIFEROL
  4. NICODERM CQ [Concomitant]
     Active Substance: NICOTINE
  5. NICORETTE [Concomitant]
     Active Substance: NICOTINE
  6. HYDROXYZINE [Concomitant]
     Active Substance: HYDROXYZINE HYDROCHLORIDE
  7. MIRTAZAPINE [Concomitant]
     Active Substance: MIRTAZAPINE
  8. VITAMINS [Concomitant]
     Active Substance: VITAMINS

REACTIONS (6)
  - Injection site pain [None]
  - Injection site pain [None]
  - Injection site pain [None]
  - Injection site swelling [None]
  - Injection site ulcer [None]
  - Injection site extravasation [None]

NARRATIVE: CASE EVENT DATE: 20240322
